FAERS Safety Report 5120438-7 (Version None)
Quarter: 2006Q4

REPORT INFORMATION
  Report Type: 
  Country: None (occurrence: None)
  Receive Date: 20061002
  Receipt Date: 20060922
  Transmission Date: 20070319
  Serious: Yes (Hospitalization)
  Sender: FDA-Public Use
  Company Number: GXKR2006DE05978

PATIENT
  Age: 26 Year
  Sex: Female

DRUGS (2)
  1. CLOZAPINE [Suspect]
     Indication: SCHIZOPHRENIFORM DISORDER
     Dosage: 50 MG, QD, ORAL
     Route: 048
  2. ZELDOX /GFR/ (ZIPRASIDONE MESILATE) [Suspect]

REACTIONS (5)
  - ANTICHOLINERGIC SYNDROME [None]
  - BLOOD CREATINE PHOSPHOKINASE INCREASED [None]
  - INTENTIONAL OVERDOSE [None]
  - SUICIDE ATTEMPT [None]
  - URINE OUTPUT INCREASED [None]
